FAERS Safety Report 21962251 (Version 2)
Quarter: 2023Q1

REPORT INFORMATION
  Report Type: Report from Study
  Country: US (occurrence: US)
  Receive Date: 20230207
  Receipt Date: 20230207
  Transmission Date: 20230417
  Serious: No
  Sender: FDA-Public Use
  Company Number: US-HRARD-2021001007

PATIENT
  Age: 36 Year
  Sex: Male

DRUGS (2)
  1. LYSODREN [Suspect]
     Active Substance: MITOTANE
     Indication: Adrenal gland cancer
     Dosage: 500 MG BID
     Route: 048
     Dates: start: 20210709
  2. LYSODREN [Concomitant]
     Active Substance: MITOTANE
     Indication: Product used for unknown indication

REACTIONS (3)
  - Weight decreased [Unknown]
  - Nausea [Unknown]
  - Vomiting [Unknown]
